FAERS Safety Report 10149692 (Version 2)
Quarter: 2014Q2

REPORT INFORMATION
  Report Type: Spontaneous
  Country: JP (occurrence: JP)
  Receive Date: 20140502
  Receipt Date: 20140610
  Transmission Date: 20141212
  Serious: Yes (Other)
  Sender: FDA-Public Use
  Company Number: PHHY2014JP052925

PATIENT
  Sex: 0

DRUGS (2)
  1. ZOMETA [Suspect]
     Indication: BREAST CANCER METASTATIC
     Route: 041
  2. ZOMETA [Suspect]
     Indication: METASTASES TO BONE

REACTIONS (1)
  - Atypical fracture [Unknown]
